FAERS Safety Report 20028404 (Version 3)
Quarter: 2022Q2

REPORT INFORMATION
  Report Type: Report from Study
  Country: US (occurrence: US)
  Receive Date: 20211103
  Receipt Date: 20220603
  Transmission Date: 20220720
  Serious: Yes (Hospitalization)
  Sender: FDA-Public Use
  Company Number: US-BIOGEN-2021BI01062682

PATIENT
  Sex: Female

DRUGS (3)
  1. VUMERITY [Suspect]
     Active Substance: DIROXIMEL FUMARATE
     Indication: Multiple sclerosis
     Dosage: 1 CAPSULE (231 MG) TWICE A DAY FOR 7 DAYS; STARTING DOSE
     Route: 048
  2. VUMERITY [Suspect]
     Active Substance: DIROXIMEL FUMARATE
     Dosage: 2 CAPSULES (462 MG) TWICE A DAY THERE AFTER; MAINTENANCE DOSE
     Route: 048
  3. VUMERITY [Suspect]
     Active Substance: DIROXIMEL FUMARATE
     Route: 065
     Dates: start: 20210923

REACTIONS (9)
  - Infection [Unknown]
  - Cellulitis [Unknown]
  - Memory impairment [Unknown]
  - Loss of consciousness [Unknown]
  - Confusional state [Unknown]
  - Gait disturbance [Unknown]
  - Gait inability [Unknown]
  - Somnolence [Unknown]
  - Impaired self-care [Unknown]
